FAERS Safety Report 25123519 (Version 1)
Quarter: 2025Q1

REPORT INFORMATION
  Report Type: Spontaneous
  Country: US (occurrence: US)
  Receive Date: 20250326
  Receipt Date: 20250326
  Transmission Date: 20250408
  Serious: No
  Sender: GRIFOLS
  Company Number: US-IGSA-BIG0031847

PATIENT
  Sex: Female
  Weight: 63.492 kg

DRUGS (21)
  1. PROLASTIN-C LIQUID [Suspect]
     Active Substance: .ALPHA.1-PROTEINASE INHIBITOR HUMAN
     Indication: Alpha-1 antitrypsin deficiency
     Dosage: 4144 MILLIGRAM, Q.WK.
     Route: 042
  2. EPINEPHRINE [Concomitant]
     Active Substance: EPINEPHRINE
  3. HEPARIN [Concomitant]
     Active Substance: HEPARIN SODIUM
  4. LIDOCAINE\PRILOCAINE [Concomitant]
     Active Substance: LIDOCAINE\PRILOCAINE
  5. SODIUM CHLORIDE [Concomitant]
     Active Substance: SODIUM CHLORIDE
  6. OXYGEN [Concomitant]
     Active Substance: OXYGEN
  7. KLONOPIN [Concomitant]
     Active Substance: CLONAZEPAM
  8. HYDROXYZINE HYDROCHLORIDE [Concomitant]
     Active Substance: HYDROXYZINE HYDROCHLORIDE
  9. ASPIRIN [Concomitant]
     Active Substance: ASPIRIN
  10. NYSTATIN [Concomitant]
     Active Substance: NYSTATIN
  11. PULMICORT TURBUHALER [Concomitant]
     Active Substance: BUDESONIDE
  12. ALBUTEROL SULFATE [Concomitant]
     Active Substance: ALBUTEROL SULFATE
  13. OMEPRAZOLE [Concomitant]
     Active Substance: OMEPRAZOLE
  14. LORATADINE D [Concomitant]
     Active Substance: LORATADINE\PSEUDOEPHEDRINE SULFATE
  15. MUPIROCIN [Concomitant]
     Active Substance: MUPIROCIN
  16. BROVANA [Concomitant]
     Active Substance: ARFORMOTEROL TARTRATE
  17. MELATONIN [Concomitant]
     Active Substance: MELATONIN
  18. XARELTO [Concomitant]
     Active Substance: RIVAROXABAN
  19. MUCINEX [Concomitant]
     Active Substance: GUAIFENESIN
  20. METOPROLOL SUCCINATE [Concomitant]
     Active Substance: METOPROLOL SUCCINATE
  21. MELOXICAM [Concomitant]
     Active Substance: MELOXICAM

REACTIONS (1)
  - Infusion site bruising [Unknown]
